FAERS Safety Report 14025154 (Version 2)
Quarter: 2017Q4

REPORT INFORMATION
  Report Type: Spontaneous
  Country: JP (occurrence: JP)
  Receive Date: 20170929
  Receipt Date: 20171005
  Transmission Date: 20180321
  Serious: Yes (Hospitalization, Other)
  Sender: FDA-Public Use
  Company Number: PHJP2017JP019928

PATIENT
  Age: 88 Year
  Sex: Female
  Weight: 38.3 kg

DRUGS (4)
  1. NICERGOLINE [Concomitant]
     Active Substance: NICERGOLINE
     Indication: PRODUCT USED FOR UNKNOWN INDICATION
     Dosage: 5 MG, TID
     Route: 048
     Dates: end: 20170615
  2. EXELON PATCH [Suspect]
     Active Substance: RIVASTIGMINE
     Indication: DEMENTIA ALZHEIMER^S TYPE
     Dosage: 1.9 MG, QD PATCH 2.5 (CM2)
     Route: 062
     Dates: end: 20170615
  3. BUFFERIN [Concomitant]
     Active Substance: ASPIRIN
     Indication: CEREBRAL INFARCTION
     Dosage: 81 MG, QD
     Route: 048
     Dates: end: 20170622
  4. ALFACALCIDOL [Concomitant]
     Active Substance: ALFACALCIDOL
     Indication: OSTEOPOROSIS
     Dosage: 0.5 UG, QD
     Route: 048
     Dates: end: 20170626

REACTIONS (7)
  - Iron deficiency anaemia [Recovering/Resolving]
  - Decreased appetite [Not Recovered/Not Resolved]
  - Metastases to liver [Unknown]
  - Gait inability [Unknown]
  - Malnutrition [Unknown]
  - Colon cancer [Unknown]
  - Dehydration [Recovering/Resolving]

NARRATIVE: CASE EVENT DATE: 20170615
